FAERS Safety Report 22018070 (Version 1)
Quarter: 2023Q1

REPORT INFORMATION
  Report Type: Spontaneous
  Country: US (occurrence: US)
  Receive Date: 20230221
  Receipt Date: 20230221
  Transmission Date: 20230417
  Serious: No
  Sender: FDA-Public Use
  Company Number: US-PFIZER INC-202300073343

PATIENT
  Age: 53 Year
  Sex: Female
  Weight: 88.435 kg

DRUGS (1)
  1. PAXLOVID [Suspect]
     Active Substance: NIRMATRELVIR\RITONAVIR
     Indication: COVID-19 treatment
     Dosage: [PF-07321332 150 MG]/[RITONAVIR 100 MG]; 2X/DAY
     Route: 048
     Dates: start: 20230207, end: 20230213

REACTIONS (9)
  - Malaise [Unknown]
  - Cough [Unknown]
  - Nasopharyngitis [Unknown]
  - Pain [Unknown]
  - Chills [Unknown]
  - Sinus pain [Unknown]
  - Myalgia [Unknown]
  - Nasal congestion [Unknown]
  - Inappropriate schedule of product administration [Unknown]

NARRATIVE: CASE EVENT DATE: 20230216
